FAERS Safety Report 4700289-5 (Version None)
Quarter: 2005Q2

REPORT INFORMATION
  Report Type: 
  Country: None (occurrence: None)
  Receive Date: 20050627
  Receipt Date: 20050616
  Transmission Date: 20051028
  Serious: Yes (Hospitalization)
  Sender: FDA-Public Use
  Company Number: JP-MERCK-0506USA02930

PATIENT
  Age: 60 Year
  Sex: Male

DRUGS (12)
  1. DECADRON [Suspect]
     Indication: BURKITT'S LYMPHOMA
     Route: 065
  2. CYCLOPHOSPHAMIDE [Concomitant]
     Indication: BURKITT'S LYMPHOMA
     Route: 065
  3. DOXORUBICIN HYDROCHLORIDE [Concomitant]
     Indication: BURKITT'S LYMPHOMA
     Route: 065
  4. VINCRISTINE SULFATE [Concomitant]
     Indication: BURKITT'S LYMPHOMA
     Route: 065
  5. PREDNISOLONE [Concomitant]
     Indication: BURKITT'S LYMPHOMA
     Route: 065
  6. ETOPOSIDE [Concomitant]
     Indication: BURKITT'S LYMPHOMA
     Route: 065
  7. METHYLPREDNISOLONE [Concomitant]
     Indication: BURKITT'S LYMPHOMA
     Route: 065
  8. CYTARABINE [Concomitant]
     Indication: BURKITT'S LYMPHOMA
     Route: 065
  9. CISPLATIN [Concomitant]
     Indication: BURKITT'S LYMPHOMA
     Route: 065
  10. METHOTREXATE [Concomitant]
     Indication: BURKITT'S LYMPHOMA
     Route: 065
  11. [THERAPY UNSPECIFIED] [Concomitant]
     Indication: BURKITT'S LYMPHOMA
     Route: 065
  12. CLINDAMYCIN HYDROCHLORIDE [Concomitant]
     Indication: BURKITT'S LYMPHOMA
     Route: 065

REACTIONS (1)
  - CLOSTRIDIUM COLITIS [None]
